FAERS Safety Report 20033710 (Version 1)
Quarter: 2021Q4

REPORT INFORMATION
  Report Type: Spontaneous
  Country: TR (occurrence: TR)
  Receive Date: 20211104
  Receipt Date: 20211104
  Transmission Date: 20220303
  Serious: Yes (Other)
  Sender: FDA-Public Use
  Company Number: TR-BEH-2021137676

PATIENT
  Age: 68 Year
  Sex: Female

DRUGS (2)
  1. PRIVIGEN [Suspect]
     Active Substance: HUMAN IMMUNOGLOBULIN G
     Dosage: SECOND DOSE
     Route: 042
     Dates: start: 20211021, end: 20211021
  2. PRIVIGEN [Suspect]
     Active Substance: HUMAN IMMUNOGLOBULIN G
     Dosage: FIRST DOSE
     Route: 042

REACTIONS (4)
  - Respiratory distress [Not Recovered/Not Resolved]
  - Vasoconstriction [Not Recovered/Not Resolved]
  - Chills [Not Recovered/Not Resolved]
  - Immune system disorder [Not Recovered/Not Resolved]

NARRATIVE: CASE EVENT DATE: 20211021
